FAERS Safety Report 15454889 (Version 3)
Quarter: 2019Q2

REPORT INFORMATION
  Report Type: Spontaneous
  Country: JP (occurrence: JP)
  Receive Date: 20181002
  Receipt Date: 20190521
  Transmission Date: 20190711
  Serious: Yes (Life-Threatening, Hospitalization, Other)
  Sender: FDA-Public Use
  Company Number: JP-BRISTOL-MYERS SQUIBB COMPANY-BMS-2018-090807

PATIENT
  Age: 52 Year
  Sex: Female

DRUGS (1)
  1. OPDIVO [Suspect]
     Active Substance: NIVOLUMAB
     Indication: NON-SMALL CELL LUNG CANCER RECURRENT
     Dosage: 120 MG, QD
     Route: 041

REACTIONS (6)
  - Haemophagocytic lymphohistiocytosis [Unknown]
  - Purpura fulminans [Unknown]
  - Cytokine storm [Unknown]
  - Renal failure [Unknown]
  - Cardiac contusion [Unknown]
  - Rhabdomyolysis [Unknown]
